FAERS Safety Report 7800097-2 (Version None)
Quarter: 2011Q4

REPORT INFORMATION
  Report Type: 
  Country: None (occurrence: None)
  Receive Date: 20111006
  Receipt Date: 20110928
  Transmission Date: 20120403
  Serious: Yes (Other)
  Sender: FDA-Public Use
  Company Number: US-JNJFOC-20110912063

PATIENT
  Age: 56 Year
  Sex: Male

DRUGS (5)
  1. TRIAMTERENE [Concomitant]
  2. ZYRTEC [Concomitant]
  3. STELARA [Suspect]
     Indication: PSORIASIS
     Route: 058
     Dates: start: 20110301
  4. AMLODIPINE [Concomitant]
  5. INSULIN [Concomitant]

REACTIONS (1)
  - HEPATITIS C [None]
